FAERS Safety Report 4948184-0 (Version None)
Quarter: 2006Q1

REPORT INFORMATION
  Report Type: 
  Country: None (occurrence: None)
  Receive Date: 20060320
  Receipt Date: 20060309
  Transmission Date: 20060701
  Serious: Yes (Other)
  Sender: FDA-Public Use
  Company Number: PHEH2006US03205

PATIENT
  Age: 75 Year
  Sex: Female

DRUGS (1)
  1. GENTEAL LUBRICATING EYE GEL (NVO) [Suspect]
     Indication: DRY EYE
     Dosage: 1-2 GTT, PRN
     Dates: start: 20050901

REACTIONS (3)
  - EYE INFECTION [None]
  - PHARMACEUTICAL PRODUCT COMPLAINT [None]
  - SUPERFICIAL INJURY OF EYE [None]
